FAERS Safety Report 14320226 (Version 1)
Quarter: 2017Q4

REPORT INFORMATION
  Report Type: Spontaneous
  Country: US (occurrence: US)
  Receive Date: 20171222
  Receipt Date: 20171222
  Transmission Date: 20180321
  Serious: Yes (Hospitalization)
  Sender: FDA-Public Use
  Company Number: None

PATIENT
  Age: 73 Year
  Sex: Female

DRUGS (1)
  1. IBRANCE [Suspect]
     Active Substance: PALBOCICLIB
     Indication: NEOPLASM MALIGNANT
     Dosage: 125 MG DAILY FOR 21 DAYS AND 7 DAYS OFF PO
     Route: 048
     Dates: start: 20160513, end: 20171127

REACTIONS (4)
  - Red blood cell count decreased [None]
  - Nausea [None]
  - White blood cell count decreased [None]
  - Rash [None]

NARRATIVE: CASE EVENT DATE: 20171110
